FAERS Safety Report 13014202 (Version 3)
Quarter: 2017Q3

REPORT INFORMATION
  Report Type: Spontaneous
  Country: BR (occurrence: BR)
  Receive Date: 20161209
  Receipt Date: 20170830
  Transmission Date: 20171127
  Serious: Yes (Other)
  Sender: FDA-Public Use
  Company Number: BR-ABBVIE-16P-020-1805875-00

PATIENT
  Age: 44 Year
  Sex: Male
  Weight: 110 kg

DRUGS (12)
  1. HYDROCHLOROTHIAZIDE. [Concomitant]
     Active Substance: HYDROCHLOROTHIAZIDE
     Indication: BLOOD PRESSURE ABNORMAL
     Route: 048
  2. PANTOPRAZOLE [Concomitant]
     Active Substance: PANTOPRAZOLE
     Indication: PROPHYLAXIS
     Route: 048
     Dates: start: 201612
  3. AMLODIPINE BESYLATE. [Concomitant]
     Active Substance: AMLODIPINE BESYLATE
     Indication: BLOOD PRESSURE ABNORMAL
     Route: 048
  4. DEXAMETHASONE. [Concomitant]
     Active Substance: DEXAMETHASONE
     Indication: PRODUCT USED FOR UNKNOWN INDICATION
     Dosage: DAILY DOSE: 8MG (4 MG BEFORE BREAKFAST/4 MG AFTER DINNER)
     Route: 048
     Dates: start: 20161129
  5. DEPAKOTE [Suspect]
     Active Substance: DIVALPROEX SODIUM
     Indication: SEIZURE
     Route: 048
     Dates: start: 20161128, end: 2017
  6. SUMAXPRO [Concomitant]
     Indication: MIGRAINE
     Dosage: FORM STRENGTH: ^50 + 500MG^; FREQUENCY: WHEN HAVE MIGRAINE
     Route: 048
     Dates: start: 20161129
  7. ALPRAZOLAM. [Concomitant]
     Active Substance: ALPRAZOLAM
     Indication: SEDATIVE THERAPY
     Dosage: DAILY DOSE: 1MG; NIGHT
     Route: 048
     Dates: start: 20161129
  8. DEPAKOTE [Suspect]
     Active Substance: DIVALPROEX SODIUM
     Route: 048
     Dates: start: 2017
  9. XARELTO [Concomitant]
     Active Substance: RIVAROXABAN
     Indication: ANTICOAGULANT THERAPY
     Route: 048
     Dates: start: 201612
  10. METOPROLOL. [Concomitant]
     Active Substance: METOPROLOL
     Indication: BLOOD PRESSURE ABNORMAL
     Route: 048
  11. DEPAKOTE [Suspect]
     Active Substance: DIVALPROEX SODIUM
     Route: 048
     Dates: start: 201612
  12. XARELTO [Concomitant]
     Active Substance: RIVAROXABAN
     Indication: THROMBOSIS

REACTIONS (12)
  - Muscle rigidity [Recovered/Resolved]
  - Confusional state [Recovered/Resolved]
  - Memory impairment [Recovered/Resolved]
  - Product use issue [Unknown]
  - Feeling abnormal [Recovered/Resolved]
  - Cerebral thrombosis [Recovering/Resolving]
  - Eye movement disorder [Recovered/Resolved]
  - Headache [Not Recovered/Not Resolved]
  - Intentional product misuse [Unknown]
  - Amnesia [Recovered/Resolved]
  - Thinking abnormal [Recovered/Resolved]
  - Headache [Recovering/Resolving]

NARRATIVE: CASE EVENT DATE: 201611
